FAERS Safety Report 12601075 (Version 3)
Quarter: 2016Q3

REPORT INFORMATION
  Report Type: Spontaneous
  Country: JP (occurrence: JP)
  Receive Date: 20160728
  Receipt Date: 20160908
  Transmission Date: 20161109
  Serious: Yes (Death, Other)
  Sender: FDA-Public Use
  Company Number: JP-009507513-1511JPN009835

PATIENT
  Age: 61 Year
  Sex: Female
  Weight: 55 kg

DRUGS (37)
  1. CEPHADOL [Concomitant]
     Active Substance: DIPHENIDOL HYDROCHLORIDE
     Dosage: 25 MG, TID
     Route: 048
  2. ASPENON [Concomitant]
     Active Substance: APRINDINE HYDROCHLORIDE
     Dosage: 20 MG, BID
     Route: 048
  3. HIRUDOID [Concomitant]
     Active Substance: GLYCOSAMINOGLYCANS
     Dosage: DAILY DOSE UNKNOWN, QD
     Route: 061
  4. VEEN D [Concomitant]
     Active Substance: CALCIUM CHLORIDE\DEXTROSE\POTASSIUM CHLORIDE\SODIUM ACETATE\SODIUM CHLORIDE
     Dosage: DIVIDED DOSE FREQUENCY UNKNOWN, 250 ML, QD
     Route: 051
     Dates: start: 20151110, end: 20151110
  5. DROLEPTAN [Concomitant]
     Active Substance: DROPERIDOL
     Dosage: DIVIDED DOSE FREQUENCU UNKNOWN, 1 ML, QD
     Route: 051
     Dates: start: 20151110, end: 20151110
  6. ROPION [Concomitant]
     Active Substance: FLURBIPROFEN AXETIL
     Dosage: DIVIDED DOSE FREQUENCU UNKNOWN, 60 MG, QD
     Route: 051
     Dates: start: 20151110, end: 20151110
  7. FENTANYL. [Suspect]
     Active Substance: FENTANYL
     Indication: GENERAL ANAESTHESIA
     Dosage: DAILY DOSE UNKNOWN
     Route: 051
     Dates: start: 20151110
  8. ETHYL LOFLAZEPATE [Concomitant]
     Active Substance: ETHYL LOFLAZEPATE
     Dosage: 2 MG, QD
     Route: 048
  9. BROTIZOLAM [Concomitant]
     Active Substance: BROTIZOLAM
     Dosage: 0.125 MG, AS NEEDED AT SLEEPLESSNESS
     Route: 048
  10. ROZEREM [Concomitant]
     Active Substance: RAMELTEON
     Dosage: 8 MG, QD
     Route: 048
  11. LEVOMEPROMAZINE [Concomitant]
     Active Substance: LEVOMEPROMAZINE
     Dosage: 0.05 G, QD
     Route: 048
  12. RINDERON VG [Concomitant]
     Active Substance: BETAMETHASONE VALERATE\GENTAMICIN SULFATE
     Dosage: SEVERAL TIMES PER DAY, DAILY DOSE UNKNOWN
     Route: 061
  13. CEFAZOLIN SODIUM. [Concomitant]
     Active Substance: CEFAZOLIN SODIUM
     Dosage: DIVIDED DOSE FREQUENCU UNKNOWN, 100 ML, QD
     Route: 051
     Dates: start: 20151110, end: 20151110
  14. SOSEGON [Concomitant]
     Active Substance: PENTAZOCINE
     Dosage: DIVIDED DOSE FREQUENCU UNKNOWN, 15 MG, QD
     Route: 051
     Dates: start: 20151110, end: 20151110
  15. SIGMART [Concomitant]
     Active Substance: NICORANDIL
     Dosage: 5 MG, TID
     Route: 048
  16. BRIDION [Suspect]
     Active Substance: SUGAMMADEX
     Indication: NEUROMUSCULAR BLOCKADE REVERSAL
     Dosage: 200 MG, ONCE
     Route: 042
     Dates: start: 20151110, end: 20151110
  17. ITOROL [Concomitant]
     Active Substance: ISOSORBIDE MONONITRATE
     Dosage: 20 MG, BID
     Route: 048
  18. CARBOCAINE [Concomitant]
     Active Substance: MEPIVACAINE HYDROCHLORIDE
     Dosage: DIVIDED DOSE FREQUENCY UNKNOWN, 15.1 ML, QD
     Route: 051
     Dates: start: 20151110, end: 20151110
  19. ATROPINE. [Concomitant]
     Active Substance: ATROPINE
     Dosage: DIVIDED DOSE FREQUENCY UNKNOWN, 0.8 MG, QD
     Route: 051
     Dates: start: 20151110, end: 20151110
  20. PROPOFOL. [Concomitant]
     Active Substance: PROPOFOL
     Dosage: DIVIDED DOSE FREQUENCY UNKNOWN, 120 MG, QD
     Route: 051
     Dates: start: 20151110, end: 20151110
  21. CYMBALTA [Concomitant]
     Active Substance: DULOXETINE HYDROCHLORIDE
     Dosage: 40 MG, QD
     Route: 048
  22. ETIZOLAM [Concomitant]
     Active Substance: ETIZOLAM
     Dosage: 0.5 MG, UP TO TWICE PER DAY AT IRRITABILITY
     Route: 048
  23. XYLOCAINE [Concomitant]
     Active Substance: LIDOCAINE HYDROCHLORIDE
     Dosage: DIVIDED DOSE FREQUENCY UNKNOWN, 3 ML, QD
     Route: 051
     Dates: start: 20151110, end: 20151110
  24. TETRAMIDE TABLETS 10MG [Concomitant]
     Active Substance: MIANSERIN
     Dosage: 60 MG, QD
     Route: 048
  25. MERISLON [Concomitant]
     Active Substance: BETAHISTINE MESILATE
     Dosage: 6 MG, TID
     Route: 048
  26. METHYCOBAL [Concomitant]
     Active Substance: METHYLCOBALAMIN
     Dosage: 500 MICROGRAM, TID
     Route: 048
  27. LIPIDIL [Concomitant]
     Active Substance: FENOFIBRATE
     Dosage: 80 MG, BID
     Route: 048
  28. WARFARIN POTASSIUM [Concomitant]
     Active Substance: WARFARIN POTASSIUM
     Dosage: 1.5 MG, QD
     Route: 048
  29. ANAPEINE [Concomitant]
     Active Substance: ROPIVACAINE HYDROCHLORIDE
     Dosage: DIVIDED DOSE FREQUENCY UNKNOWN, 100 ML, QD
     Route: 051
     Dates: start: 20151110, end: 20151110
  30. SOLACET F [Concomitant]
     Dosage: DIVIDED DOSE FREQUENCU UNKNOWN, 380 ML, QD
     Route: 051
     Dates: start: 20151110, end: 20151110
  31. BIO-THREE [Concomitant]
     Active Substance: HERBALS
     Dosage: 1 G, TID
     Route: 048
  32. FLUNITRAZEPAM [Concomitant]
     Active Substance: FLUNITRAZEPAM
     Dosage: 2 MG, QD
     Route: 048
  33. LOXONIN [Concomitant]
     Active Substance: LOXOPROFEN SODIUM
     Indication: GASTRIC ULCER
     Dosage: 60 MG, TID
     Route: 048
  34. FRANDOL [Concomitant]
     Active Substance: ISOSORBIDE DINITRATE
     Dosage: 1 DOSAGE FORM, QD
     Route: 062
  35. NITROGLYCERIN. [Concomitant]
     Active Substance: NITROGLYCERIN
     Dosage: 1 DOSAGE FORM, AT CHEST PAIN
     Route: 060
  36. ESLAX INTRAVENOUS 25MG/2.5ML [Concomitant]
     Active Substance: ROCURONIUM BROMIDE
     Dosage: DIVIDED DOSE FREQUENCY UNKNOWN, 70 MG, QD
     Route: 051
     Dates: start: 20151110, end: 20151110
  37. SUPRANE [Concomitant]
     Active Substance: DESFLURANE
     Dosage: DIVIDED DOSE FREQUENCU UNKNOWN, 30.5 ML, QD
     Route: 048
     Dates: start: 20151110, end: 20151110

REACTIONS (14)
  - Shock [Unknown]
  - Myocardial infarction [Unknown]
  - Cardiac arrest [Fatal]
  - Electrocardiogram ST segment elevation [Unknown]
  - Ventricular tachycardia [Fatal]
  - Bradycardia [Fatal]
  - Ventricular fibrillation [Unknown]
  - Renal failure [Unknown]
  - Respiratory arrest [Fatal]
  - Multi-organ disorder [Fatal]
  - Altered state of consciousness [Fatal]
  - Disseminated intravascular coagulation [Unknown]
  - Arteriospasm coronary [Fatal]
  - Pneumothorax [Unknown]

NARRATIVE: CASE EVENT DATE: 201511
